FAERS Safety Report 9399675 (Version 1)
Quarter: 2013Q3

REPORT INFORMATION
  Report Type: Spontaneous
  Country: FR (occurrence: FR)
  Receive Date: 20130715
  Receipt Date: 20130715
  Transmission Date: 20140515
  Serious: Yes (Hospitalization)
  Sender: FDA-Public Use
  Company Number: FR-JNJFOC-20130706520

PATIENT
  Sex: Male

DRUGS (2)
  1. SIMPONI [Suspect]
     Indication: ANKYLOSING SPONDYLITIS
     Dosage: ONE MOTH PRIOR TO TEH ADTE OF REPORT, ESTIMATED AS JUN-2013.
     Route: 058
     Dates: start: 2013
  2. SIMPONI [Suspect]
     Indication: ANKYLOSING SPONDYLITIS
     Dosage: SECOND INJECTION, A WEEK PRIOR TO THE DATE OF REPORT
     Route: 058
     Dates: start: 2013

REACTIONS (1)
  - Skin reaction [Unknown]
